FAERS Safety Report 14143227 (Version 2)
Quarter: 2020Q3

REPORT INFORMATION
  Report Type: Report from Study
  Country: US (occurrence: US)
  Receive Date: 20171030
  Receipt Date: 20200710
  Transmission Date: 20201102
  Serious: Yes (Hospitalization, Other)
  Sender: FDA-Public Use
  Company Number: US-ARIAD PHARMACEUTICALS, INC-2016US006582

PATIENT
  Sex: Male

DRUGS (7)
  1. PONATINIB [Suspect]
     Active Substance: PONATINIB
     Indication: CHRONIC MYELOID LEUKAEMIA
     Dosage: 45 MILLIGRAM, QD
     Route: 048
     Dates: start: 20160608
  2. PONATINIB [Suspect]
     Active Substance: PONATINIB
     Indication: MYELOID LEUKAEMIA
     Dosage: 45 MILLIGRAM, QD
     Route: 048
     Dates: start: 20160608
  3. PONATINIB [Suspect]
     Active Substance: PONATINIB
     Dosage: 30 MILLIGRAM, QD
     Route: 048
  4. MELATONIN [Concomitant]
     Active Substance: MELATONIN
     Dosage: UNK
     Route: 065
  5. PONATINIB [Suspect]
     Active Substance: PONATINIB
     Dosage: 15 MILLIGRAM, QD
     Route: 048
  6. PONATINIB [Suspect]
     Active Substance: PONATINIB
     Dosage: 30 MILLIGRAM, QD
     Route: 048
  7. PONATINIB [Suspect]
     Active Substance: PONATINIB
     Dosage: 30 MILLIGRAM, QD
     Route: 048

REACTIONS (21)
  - Stem cell transplant [Unknown]
  - Marrow hyperplasia [Unknown]
  - Neutropenia [Unknown]
  - Electrocardiogram ST segment elevation [Unknown]
  - Vomiting [Unknown]
  - Inappropriate schedule of product administration [Unknown]
  - Off label use [Unknown]
  - Blood urine present [Unknown]
  - Transfusion [Unknown]
  - Influenza [Unknown]
  - Blood pressure increased [Unknown]
  - Mucosal inflammation [Unknown]
  - Product dose omission issue [Unknown]
  - Bone marrow transplant [Unknown]
  - Pyrexia [Unknown]
  - Raynaud^s phenomenon [Unknown]
  - Immunodeficiency [Unknown]
  - Blood creatine increased [Unknown]
  - Ill-defined disorder [Unknown]
  - Hypophagia [Unknown]
  - Oral pain [Unknown]
